FAERS Safety Report 21989644 (Version 2)
Quarter: 2023Q1

REPORT INFORMATION
  Report Type: Report from Study
  Country: BR (occurrence: BR)
  Receive Date: 20230214
  Receipt Date: 20230308
  Transmission Date: 20230418
  Serious: Yes (Hospitalization, Other)
  Sender: FDA-Public Use
  Company Number: BR-002147023-NVSC2023BR031025

PATIENT
  Sex: Female

DRUGS (1)
  1. KISQALI [Suspect]
     Active Substance: RIBOCICLIB
     Indication: Product used for unknown indication
     Dosage: UNK
     Route: 065
     Dates: start: 20221124

REACTIONS (8)
  - Pain [Unknown]
  - Metastases to bone [Unknown]
  - Hepatic pain [Unknown]
  - Infection [Unknown]
  - Metastases to spine [Unknown]
  - Metastases to liver [Unknown]
  - Malaise [Unknown]
  - Disease progression [Unknown]
